FAERS Safety Report 4730288-9 (Version None)
Quarter: 2005Q3

REPORT INFORMATION
  Report Type: 
  Country: None (occurrence: None)
  Receive Date: 20050728
  Receipt Date: 20050715
  Transmission Date: 20060218
  Serious: Yes (Death, Hospitalization)
  Sender: FDA-Public Use
  Company Number: HQWYE969905JUL05

PATIENT
  Age: 35 Year
  Sex: Male

DRUGS (1)
  1. MINOCIN [Suspect]
     Indication: BACTERIAL INFECTION
     Dosage: 100 MG DAILY INTRAVENOUS DRIP
     Route: 041
     Dates: start: 20010524, end: 20010531

REACTIONS (7)
  - LYMPHADENITIS [None]
  - NECROSIS [None]
  - PLATELET COUNT DECREASED [None]
  - PRURITUS [None]
  - RASH [None]
  - SUDDEN DEATH [None]
  - WHITE BLOOD CELL COUNT DECREASED [None]
